FAERS Safety Report 12097889 (Version 1)
Quarter: 2016Q1

REPORT INFORMATION
  Report Type: Spontaneous
  Country: US (occurrence: US)
  Receive Date: 20160221
  Receipt Date: 20160221
  Transmission Date: 20160526
  Serious: No
  Sender: FDA-Public Use
  Company Number: US-ACORDA-ACO_111288_2015

PATIENT
  Age: 61 Year
  Sex: Female
  Weight: 63.49 kg

DRUGS (2)
  1. AMPYRA [Suspect]
     Active Substance: DALFAMPRIDINE
     Indication: GAIT DISTURBANCE
     Dosage: 10 MG, Q 12 HRS
     Route: 048
     Dates: start: 20150226, end: 20150530
  2. TECFIDERA [Concomitant]
     Active Substance: DIMETHYL FUMARATE
     Indication: PRODUCT USED FOR UNKNOWN INDICATION
     Dosage: 240 MG, UNK

REACTIONS (4)
  - Headache [Recovering/Resolving]
  - Dizziness [Recovering/Resolving]
  - Balance disorder [Recovering/Resolving]
  - Muscle spasms [Recovered/Resolved]

NARRATIVE: CASE EVENT DATE: 201504
